FAERS Safety Report 19798613 (Version 1)
Quarter: 2021Q3

REPORT INFORMATION
  Report Type: Spontaneous
  Country: CN (occurrence: CN)
  Receive Date: 20210907
  Receipt Date: 20210907
  Transmission Date: 20211014
  Serious: Yes (Other)
  Sender: FDA-Public Use
  Company Number: CN-PFIZER INC-202101104443

PATIENT
  Age: 75 Year
  Sex: Male
  Weight: 55 kg

DRUGS (2)
  1. LINEZOLID. [Suspect]
     Active Substance: LINEZOLID
     Indication: BACTERIAL INFECTION
  2. LINEZOLID. [Suspect]
     Active Substance: LINEZOLID
     Indication: SEPSIS
     Dosage: 0.6 G, 2X/DAY
     Route: 041
     Dates: start: 20210816, end: 20210822

REACTIONS (2)
  - Blood bilirubin increased [Unknown]
  - Renal failure [Unknown]

NARRATIVE: CASE EVENT DATE: 20210821
